FAERS Safety Report 6651130-5 (Version None)
Quarter: 2010Q1

REPORT INFORMATION
  Report Type: 
  Country: None (occurrence: None)
  Receive Date: 20100323
  Receipt Date: 20100311
  Transmission Date: 20100710
  Serious: Yes (Death)
  Sender: FDA-Public Use
  Company Number: WAES 0908USA02816

PATIENT
  Age: 76 Year
  Sex: Female
  Weight: 90.7194 kg

DRUGS (10)
  1. COZAAR [Suspect]
     Dosage: 100 MG/DAILY/PO
     Route: 048
  2. ARIMIDEX [Suspect]
     Indication: BREAST CANCER
     Dosage: 1 MG/DAILY/PO
     Route: 048
     Dates: start: 20060118
  3. NORVASC [Suspect]
     Dosage: 0 MG/DAILY
  4. TAB GLIBENCLAMIDE UNK [Suspect]
     Dosage: 1.5 MG/AM
  5. METFORMIN HCL [Suspect]
     Dosage: 850 MG/BID
  6. HYDRODIURIL [Suspect]
     Dosage: 12.5 MG/DAILY/PO
     Route: 048
  7. ASPIRIN [Suspect]
     Dosage: 81 MG/DAILY
  8. CALCIUM (UNSPECIFIED) (+) VITAMIN D (UNSPECIFIED) UNK [Suspect]
     Indication: OSTEOPOROSIS
     Dosage: 500 MG
  9. SYNTHROID [Suspect]
     Dosage: 50 MICROGM/5 DAYS ON/16 DAYS OFF
  10. BONIVA [Suspect]
     Indication: OSTEOPOROSIS
     Dosage: 150 MG/MTH
     Dates: start: 20060103

REACTIONS (3)
  - CARDIAC ARREST [None]
  - LOSS OF CONSCIOUSNESS [None]
  - SUDDEN DEATH [None]
